FAERS Safety Report 14351826 (Version 3)
Quarter: 2018Q2

REPORT INFORMATION
  Report Type: Report from Study
  Country: BR (occurrence: BR)
  Receive Date: 20180104
  Receipt Date: 20180604
  Transmission Date: 20180711
  Serious: Yes (Other)
  Sender: FDA-Public Use
  Company Number: PHHY2017BR193470

PATIENT
  Age: 86 Year
  Sex: Female
  Weight: 67 kg

DRUGS (1)
  1. FORASEQ [Suspect]
     Active Substance: BUDESONIDE\FORMOTEROL FUMARATE
     Indication: BRONCHITIS CHRONIC
     Dosage: UNK UNK, BID
     Route: 055
     Dates: start: 20171221, end: 20171224

REACTIONS (3)
  - Drug prescribing error [Unknown]
  - Drug dependence [Unknown]
  - Device use issue [Unknown]

NARRATIVE: CASE EVENT DATE: 20171221
